FAERS Safety Report 6371375-1 (Version None)
Quarter: 2009Q3

REPORT INFORMATION
  Report Type: 
  Country: None (occurrence: None)
  Receive Date: 20090923
  Receipt Date: 20090911
  Transmission Date: 20100115
  Serious: Yes (Other)
  Sender: FDA-Public Use
  Company Number: JP-PFIZER INC-2009269398

PATIENT

DRUGS (2)
  1. SELARA [Suspect]
     Route: 048
  2. DIGITALIS [Concomitant]
     Dosage: UNK
     Route: 048

REACTIONS (2)
  - BLOOD POTASSIUM DECREASED [None]
  - CARDIAC ARREST [None]
